FAERS Safety Report 10710588 (Version 1)
Quarter: 2015Q1

REPORT INFORMATION
  Report Type: Spontaneous
  Country: US (occurrence: None)
  Receive Date: 20150112
  Receipt Date: 20150112
  Transmission Date: 20150721
  Serious: Yes (Other)
  Sender: FDA-Public Use
  Company Number: US-H14001-15-00016

PATIENT
  Age: 73 Year
  Sex: Female
  Weight: 73.21 kg

DRUGS (4)
  1. OXYGEN (OXYGEN) (UNKNOWN) (OXYGEN) [Concomitant]
  2. DEXAMETHASONE (DEXAMETHASONE SODIUM PHOSPHATE) (UNKNOWN) (DEXAMETHASONE SODIUM PHOSPHATE) [Suspect]
     Active Substance: DEXAMETHASONE
     Indication: PLASMA CELL MYELOMA
     Dosage: 4 MG, DAYS 1-2, 8-9, 15-16, INTRAVENOUS (NOT OTHERWISE SPECIFIED)
     Route: 042
     Dates: start: 20141020
  3. BLOOD TRANSFUSION (BLOOD AND RELATED PRODUCTS) (UNKNOWN) [Concomitant]
  4. CARFILZOMIB (CARFILZOMIB) (UNKNOWN) (CARFILZOMIB) [Suspect]
     Active Substance: CARFILZOMIB
     Indication: PLASMA CELL MYELOMA
     Dosage: 20 MG/M2, 35 MG ON DAYS 1-2, 8-9, 15-16, INTRAVENOUS (NOT OTHERWISE SPECIFIED)?
     Route: 042
     Dates: start: 20141020

REACTIONS (2)
  - Pulmonary oedema [None]
  - Cardiac failure congestive [None]

NARRATIVE: CASE EVENT DATE: 20141022
